FAERS Safety Report 9601198 (Version 1)
Quarter: 2013Q4

REPORT INFORMATION
  Report Type: Spontaneous
  Country: CA (occurrence: CA)
  Receive Date: 20131005
  Receipt Date: 20131005
  Transmission Date: 20140711
  Serious: Yes (Other)
  Sender: FDA-Public Use
  Company Number: CA-ROCHE-1284325

PATIENT
  Sex: Male

DRUGS (2)
  1. RITUXAN [Suspect]
     Indication: MULTIPLE SCLEROSIS
     Route: 042
  2. RITUXAN [Suspect]
     Indication: OFF LABEL USE

REACTIONS (3)
  - Gastroenteritis [Unknown]
  - Hypertension [Unknown]
  - Coronary artery bypass [Unknown]
